FAERS Safety Report 12683063 (Version 1)
Quarter: 2016Q3

REPORT INFORMATION
  Report Type: Spontaneous
  Country: US (occurrence: US)
  Receive Date: 20160825
  Receipt Date: 20160825
  Transmission Date: 20161109
  Serious: No
  Sender: FDA-Public Use
  Company Number: US-BAYER-2016-156470

PATIENT
  Age: 69 Year
  Sex: Female
  Weight: 82.99 kg

DRUGS (3)
  1. CLONAZEPAM. [Concomitant]
     Active Substance: CLONAZEPAM
  2. LISINOPRIL. [Concomitant]
     Active Substance: LISINOPRIL
  3. ZEGERID OTC CAPSULES [Suspect]
     Active Substance: OMEPRAZOLE\SODIUM BICARBONATE
     Dosage: 1 DF, QD A HALF HOUR BEFORE SHE EATS
     Route: 048
     Dates: start: 201602

REACTIONS (3)
  - Product use issue [None]
  - Product quality issue [None]
  - Off label use [None]
